FAERS Safety Report 8169548-0 (Version None)
Quarter: 2012Q1

REPORT INFORMATION
  Report Type: 
  Country: None (occurrence: None)
  Receive Date: 20120104
  Receipt Date: 20111101
  Transmission Date: 20120608
  Serious: No
  Sender: FDA-Public Use
  Company Number: 2011HGS-002722

PATIENT
  Age: 33 Year
  Sex: Female
  Weight: 68.0396 kg

DRUGS (9)
  1. PREDNISONE [Concomitant]
  2. ATENOLOL [Concomitant]
  3. AMBIEN [Concomitant]
  4. LISINOPRIL W/HYDROCHLOROTHIAZIDE (PRINZIDE) (HYDORCHLOROTHIAZIDE, LISI [Concomitant]
  5. BENLYSTA [Suspect]
     Indication: SYSTEMIC LUPUS ERYTHEMATOSUS
     Dosage: 120 MG IN A 5 ML VIAL, INTRAVENOUS DRIP
     Route: 041
     Dates: start: 20110920
  6. PLAQUENIL (HYDROXYCHLOROQUINE SULFATE) (HYDROXYCHLOROQUINE SULFATE) [Concomitant]
  7. PROMACTA (ANTITHROMBOTIC AGENTS) (ELTROMBOPAG) [Concomitant]
  8. LORACET (ACETAMINOPHEN, HYDROCODONE) [Concomitant]
  9. PROVERA (MEDROXYPROGESTERONE ACETATE) (MEDROXYPROGESTERONE ACETATE) [Concomitant]

REACTIONS (2)
  - POLLAKIURIA [None]
  - ALOPECIA [None]
